FAERS Safety Report 11894060 (Version 1)
Quarter: 2016Q1

REPORT INFORMATION
  Report Type: Report from Study
  Country: DE (occurrence: DE)
  Receive Date: 20160107
  Receipt Date: 20160107
  Transmission Date: 20160526
  Serious: Yes (Other)
  Sender: FDA-Public Use
  Company Number: DE-ROCHE-1689543

PATIENT

DRUGS (2)
  1. BEVACIZUMAB [Suspect]
     Active Substance: BEVACIZUMAB
     Indication: GLIOMA
     Route: 065
  2. TEMOZOLOMIDE. [Suspect]
     Active Substance: TEMOZOLOMIDE
     Indication: GLIOMA
     Route: 065

REACTIONS (16)
  - Embolism venous [Unknown]
  - Impaired healing [Unknown]
  - Anaemia [Unknown]
  - Hypertension [Unknown]
  - Sepsis [Unknown]
  - Leukopenia [Unknown]
  - Tumour haemorrhage [Unknown]
  - Proteinuria [Unknown]
  - Osteonecrosis [Unknown]
  - Infection [Unknown]
  - Embolism arterial [Unknown]
  - Pulmonary embolism [Unknown]
  - Thrombocytopenia [Unknown]
  - Cerebral haemorrhage [Unknown]
  - Hypersensitivity [Unknown]
  - Neutropenia [Unknown]
